FAERS Safety Report 5339112-7 (Version None)
Quarter: 2007Q2

REPORT INFORMATION
  Report Type: 
  Country: None (occurrence: None)
  Receive Date: 20070330
  Receipt Date: 20060803
  Transmission Date: 20071010
  Serious: Yes (Hospitalization)
  Sender: FDA-Public Use
  Company Number: 2006EN000147

PATIENT
  Age: 3 Year
  Sex: Female
  Weight: 15 kg

DRUGS (1)
  1. ONCASPAR [Suspect]
     Indication: ACUTE LYMPHOCYTIC LEUKAEMIA
     Dosage: 1525 IU, IM
     Route: 030
     Dates: start: 20060607, end: 20060802

REACTIONS (9)
  - COUGH [None]
  - HYPERSENSITIVITY [None]
  - LIP SWELLING [None]
  - PERIORBITAL OEDEMA [None]
  - PHARYNGEAL OEDEMA [None]
  - SWELLING FACE [None]
  - URTICARIA [None]
  - VAGINAL SWELLING [None]
  - VOMITING [None]
